FAERS Safety Report 5661101-3 (Version None)
Quarter: 2008Q1

REPORT INFORMATION
  Report Type: 
  Country: None (occurrence: None)
  Receive Date: 20080305
  Receipt Date: 20080222
  Transmission Date: 20080703
  Serious: Yes (Hospitalization, Other)
  Sender: FDA-Public Use
  Company Number: WAES 0802USA05140

PATIENT
  Age: 67 Year
  Sex: Male
  Weight: 90.7194 kg

DRUGS (3)
  1. DECADRON [Suspect]
     Indication: BRAIN OEDEMA
     Dosage: 4 MG QID PO, 1 MG DAILY PO
     Route: 048
     Dates: start: 20080119, end: 20080129
  2. DECADRON [Suspect]
     Indication: BRAIN OEDEMA
     Dosage: 4 MG QID PO, 1 MG DAILY PO
     Route: 048
     Dates: start: 20071130
  3. TEMODAR [Suspect]
     Indication: GLIOBLASTOMA MULTIFORME
     Dosage: 75 MG/M [2] DAILY PO
     Route: 048
     Dates: start: 20071218

REACTIONS (8)
  - HAEMATOCRIT DECREASED [None]
  - HAEMOGLOBIN DECREASED [None]
  - HYPERGLYCAEMIA [None]
  - NAUSEA [None]
  - PLEURAL EFFUSION [None]
  - PNEUMONIA [None]
  - THROMBOCYTOPENIA [None]
  - VOMITING [None]
